FAERS Safety Report 6963987-9 (Version None)
Quarter: 2010Q3

REPORT INFORMATION
  Report Type: 
  Country: None (occurrence: None)
  Receive Date: 20100902
  Receipt Date: 20100902
  Transmission Date: 20110219
  Serious: Yes (Disabling)
  Sender: FDA-Public Use
  Company Number: None

PATIENT
  Age: 79 Year
  Sex: Female
  Weight: 84.8226 kg

DRUGS (1)
  1. LEVAQUIN [Suspect]
     Indication: INFECTION PROPHYLAXIS
     Dosage: 750 MG 1 MOUTH HOAG HOSP. ER 500 MG DAILY MOUTH 7 DAY RX - STOPPED AFTER 5 DAYS
     Dates: start: 20090904, end: 20090909

REACTIONS (1)
  - HYPERSENSITIVITY [None]
